FAERS Safety Report 5669769-2 (Version None)
Quarter: 2008Q1

REPORT INFORMATION
  Report Type: 
  Country: None (occurrence: None)
  Receive Date: 20080317
  Receipt Date: 20080305
  Transmission Date: 20080703
  Serious: Yes (Other)
  Sender: FDA-Public Use
  Company Number: FR-PFIZER INC-2008021246

PATIENT
  Sex: Male

DRUGS (10)
  1. NEURONTIN [Suspect]
     Indication: NEURALGIA
  2. NUREFLEX [Concomitant]
  3. OMEPRAZOLE [Concomitant]
  4. LOXEN [Concomitant]
  5. LOPRESSOR [Concomitant]
  6. PLAVIX [Concomitant]
  7. DAONIL [Concomitant]
  8. METFORMIN [Concomitant]
  9. VASTAREL [Concomitant]
  10. TAHOR [Concomitant]

REACTIONS (1)
  - MYELOID LEUKAEMIA [None]
